FAERS Safety Report 4437185-7 (Version None)
Quarter: 2004Q3

REPORT INFORMATION
  Report Type: 
  Country: None (occurrence: None)
  Receive Date: 20040726
  Receipt Date: 20040303
  Transmission Date: 20050211
  Serious: No
  Sender: FDA-Public Use
  Company Number: USA040360839

PATIENT
  Age: 77 Year
  Sex: Male
  Weight: 62 kg

DRUGS (3)
  1. FORTEO [Suspect]
     Indication: OSTEOPOROSIS
     Dosage: 20 UG/1 DAY
     Dates: start: 20030801
  2. ATENOLOL [Concomitant]
  3. NEXIUM [Concomitant]

REACTIONS (4)
  - BALANCE DISORDER [None]
  - BONE PAIN [None]
  - FATIGUE [None]
  - HEART RATE INCREASED [None]
